FAERS Safety Report 9905549 (Version 1)
Quarter: 2013Q2

REPORT INFORMATION
  Report Type: Spontaneous
  Country: US (occurrence: None)
  Receive Date: 20130627
  Receipt Date: 20130627
  Transmission Date: 20140414
  Serious: No
  Sender: FDA-Public Use
  Company Number: 1000044369

PATIENT
  Sex: Female

DRUGS (2)
  1. LINZESS ( LINACLOTIDE) [Suspect]
     Dosage: 145MCG (145 MCG, 1 IN 1 D), ORAL
     Route: 048
     Dates: start: 201304, end: 201304
  2. LINZESS [Suspect]
     Dosage: 145MCG (145 MCG, 1 IN 1 D), ORAL
     Route: 048
     Dates: start: 201304

REACTIONS (3)
  - Diarrhoea [None]
  - Abdominal pain [None]
  - Flatulence [None]
